FAERS Safety Report 17170490 (Version 1)
Quarter: 2019Q4

REPORT INFORMATION
  Report Type: Spontaneous
  Country: US (occurrence: US)
  Receive Date: 20191218
  Receipt Date: 20191218
  Transmission Date: 20200122
  Serious: Yes (Hospitalization)
  Sender: FDA-Public Use
  Company Number: US-MYLANLABS-2019M1125213

PATIENT
  Age: 39 Year
  Sex: Male

DRUGS (1)
  1. VIVARIN [Suspect]
     Active Substance: CAFFEINE
     Indication: PRODUCT USED FOR UNKNOWN INDICATION
     Route: 048

REACTIONS (16)
  - Ventricular extrasystoles [Recovering/Resolving]
  - Supraventricular tachycardia [Recovering/Resolving]
  - Agitation [Recovering/Resolving]
  - Hyperhidrosis [Recovering/Resolving]
  - Metabolic disorder [Recovering/Resolving]
  - Toxicity to various agents [Recovering/Resolving]
  - Hypokalaemia [Recovering/Resolving]
  - Intentional overdose [Recovering/Resolving]
  - Vomiting [Recovering/Resolving]
  - Rhabdomyolysis [Recovering/Resolving]
  - Nausea [Recovering/Resolving]
  - Aggression [Recovering/Resolving]
  - Metabolic acidosis [Recovering/Resolving]
  - Renal failure [Recovering/Resolving]
  - Circulatory collapse [Recovering/Resolving]
  - Extrasystoles [Recovering/Resolving]
